FAERS Safety Report 6348297-5 (Version None)
Quarter: 2009Q3

REPORT INFORMATION
  Report Type: 
  Country: None (occurrence: None)
  Receive Date: 20090910
  Receipt Date: 20090903
  Transmission Date: 20100115
  Serious: Yes (Hospitalization)
  Sender: FDA-Public Use
  Company Number: US-JNJCH-2009023998

PATIENT
  Sex: Male

DRUGS (2)
  1. DEXTROMETHORPHAN,GUAIFENESIN [Suspect]
     Indication: NASAL CONGESTION
     Dosage: TEXT:UNKNOWN
     Route: 048
  2. ACETAMINOPHEN [Suspect]
     Indication: DRUG USE FOR UNKNOWN INDICATION
     Dosage: TEXT:UNKNOWN
     Route: 065

REACTIONS (8)
  - AGITATION [None]
  - CYANOSIS [None]
  - HYPERREFLEXIA [None]
  - HYPERTONIA [None]
  - LIVEDO RETICULARIS [None]
  - MUSCULOSKELETAL STIFFNESS [None]
  - OVERDOSE [None]
  - WRONG DRUG ADMINISTERED [None]
